FAERS Safety Report 9324882 (Version 5)
Quarter: 2014Q1

REPORT INFORMATION
  Report Type: Spontaneous
  Country: US (occurrence: US)
  Receive Date: 20130603
  Receipt Date: 20140214
  Transmission Date: 20141002
  Serious: Yes (Hospitalization, Disabling, Other)
  Sender: FDA-Public Use
  Company Number: US-009507513-1305USA018032

PATIENT
  Sex: Female
  Weight: 79.82 kg

DRUGS (1)
  1. NUVARING [Suspect]
     Indication: CONTRACEPTION
     Dosage: UNK
     Route: 067
     Dates: start: 200802, end: 20110707

REACTIONS (12)
  - Convulsion [Recovered/Resolved]
  - Cerebrovascular accident [Not Recovered/Not Resolved]
  - Deep vein thrombosis [Unknown]
  - Essential hypertension [Unknown]
  - Hyponatraemia [Unknown]
  - Dehydration [Unknown]
  - Depression [Unknown]
  - Hyperglycaemia [Unknown]
  - Cyst removal [Unknown]
  - Substance abuse [Unknown]
  - Hyperlipidaemia [Unknown]
  - Anxiety [Unknown]
